FAERS Safety Report 10238491 (Version 1)
Quarter: 2014Q2

REPORT INFORMATION
  Report Type: Spontaneous
  Country: TR (occurrence: None)
  Receive Date: 20140612
  Receipt Date: 20140612
  Transmission Date: 20141212
  Serious: Yes (Other)
  Sender: FDA-Public Use
  Company Number: TR-ALKEM-000608

PATIENT
  Age: 57 Year
  Sex: Female

DRUGS (2)
  1. METFORMIN [Suspect]
     Indication: DIABETES MELLITUS
  2. SULPHASALAZINE [Suspect]
     Indication: RHEUMATOID ARTHRITIS

REACTIONS (7)
  - Myalgia [None]
  - Carpal tunnel syndrome [None]
  - Senile ankylosing vertebral hyperostosis [None]
  - Diabetic cheiropathy [None]
  - Vitamin D deficiency [None]
  - Diabetes mellitus inadequate control [None]
  - Periarthritis [None]
